FAERS Safety Report 17261032 (Version 2)
Quarter: 2020Q1

REPORT INFORMATION
  Report Type: Spontaneous
  Country: US (occurrence: US)
  Receive Date: 20200113
  Receipt Date: 20200203
  Transmission Date: 20200409
  Serious: No
  Sender: FDA-Public Use
  Company Number: US-SHIRE-US202000556

PATIENT
  Sex: Female
  Weight: 70.3 kg

DRUGS (3)
  1. GAMMAGARD [Suspect]
     Active Substance: HUMAN IMMUNOGLOBULIN G
     Dosage: UNK, EVERY 4 WK
     Route: 042
     Dates: start: 20170228
  2. GAMMAGARD [Suspect]
     Active Substance: HUMAN IMMUNOGLOBULIN G
     Dosage: UNK, EVERY 4 WK
     Route: 042
     Dates: end: 20200107
  3. GAMMAGARD [Suspect]
     Active Substance: HUMAN IMMUNOGLOBULIN G
     Indication: IMMUNODEFICIENCY
     Dosage: UNK, EVERY 4 WK
     Route: 042
     Dates: end: 201910

REACTIONS (4)
  - Product availability issue [Unknown]
  - Malaise [Unknown]
  - Pyrexia [Unknown]
  - Cough [Unknown]
